FAERS Safety Report 22721682 (Version 2)
Quarter: 2024Q3

REPORT INFORMATION
  Report Type: Spontaneous
  Country: US (occurrence: US)
  Receive Date: 20230719
  Receipt Date: 20240723
  Transmission Date: 20241017
  Serious: Yes (Other)
  Sender: OTSUKA
  Company Number: US-OTSUKA-2023_005372

PATIENT
  Age: 30 Year
  Sex: Female
  Weight: 95.25 kg

DRUGS (2)
  1. REXULTI [Suspect]
     Active Substance: BREXPIPRAZOLE
     Indication: Borderline personality disorder
     Dosage: 0.5 MG
     Route: 065
     Dates: start: 20230224
  2. REXULTI [Suspect]
     Active Substance: BREXPIPRAZOLE
     Indication: Bipolar disorder

REACTIONS (10)
  - Syncope [Unknown]
  - Paranoia [Not Recovered/Not Resolved]
  - Feeling abnormal [Unknown]
  - Agitation [Not Recovered/Not Resolved]
  - Thinking abnormal [Unknown]
  - Tension [Not Recovered/Not Resolved]
  - Nasopharyngitis [Unknown]
  - Anxiety [Unknown]
  - Product use in unapproved indication [Unknown]
  - Product prescribing error [Unknown]

NARRATIVE: CASE EVENT DATE: 20230224
